FAERS Safety Report 6371225-3 (Version None)
Quarter: 2009Q3

REPORT INFORMATION
  Report Type: 
  Country: None (occurrence: None)
  Receive Date: 20090923
  Receipt Date: 20070627
  Transmission Date: 20100115
  Serious: No
  Sender: FDA-Public Use
  Company Number: US-ASTRAZENECA-2006UW27826

PATIENT
  Age: 12516 Day
  Sex: Female
  Weight: 70.3 kg

DRUGS (15)
  1. SEROQUEL [Suspect]
     Indication: SCHIZOPHRENIA
     Dosage: 25 MG, 600 MG
     Route: 048
     Dates: start: 20010101, end: 20070101
  2. SEROQUEL [Suspect]
     Dosage: 100 MG -  800 MG
     Route: 048
     Dates: start: 20010520
  3. GEODON [Concomitant]
  4. CLONAZEPAM [Concomitant]
  5. CELEXA [Concomitant]
  6. PERCOCET [Concomitant]
  7. AMBIEN [Concomitant]
  8. VICODIN [Concomitant]
  9. DIAZEPAM [Concomitant]
  10. ACTOS [Concomitant]
  11. GLYBURIDE [Concomitant]
  12. FLAGYL [Concomitant]
  13. DIFLUCAN [Concomitant]
  14. LEVAQUIN [Concomitant]
  15. TEMAZEPAM [Concomitant]

REACTIONS (11)
  - ABDOMINAL PAIN [None]
  - BACK PAIN [None]
  - CHEST PAIN [None]
  - DIABETES MELLITUS [None]
  - OROPHARYNGEAL PAIN [None]
  - PSYCHOTIC DISORDER [None]
  - SCOLIOSIS [None]
  - TOOTH INFECTION [None]
  - TOOTHACHE [None]
  - URINARY TRACT INFECTION [None]
  - VIRAL INFECTION [None]
